FAERS Safety Report 4886649-0 (Version None)
Quarter: 2006Q1

REPORT INFORMATION
  Report Type: 
  Country: None (occurrence: None)
  Receive Date: 20060120
  Receipt Date: 20051220
  Transmission Date: 20060701
  Serious: Yes (Other)
  Sender: FDA-Public Use
  Company Number: DE-AMGEN-UK161886

PATIENT
  Sex: Male
  Weight: 45.5 kg

DRUGS (8)
  1. MIMPARA [Suspect]
     Indication: HYPERPARATHYROIDISM SECONDARY
     Route: 048
     Dates: start: 20050425
  2. METOPROLOL SUCCINATE [Concomitant]
     Route: 048
     Dates: start: 20050425
  3. ROCALTROL [Concomitant]
     Route: 048
     Dates: start: 20050822
  4. CALCIUM ACETATE [Concomitant]
     Route: 048
     Dates: start: 20050828
  5. CELLCEPT [Concomitant]
     Route: 048
     Dates: start: 20050816
  6. DECORTIN [Concomitant]
     Route: 048
     Dates: start: 20050820
  7. OMEPRAZOLE [Concomitant]
     Route: 048
     Dates: start: 20050820
  8. ACTRAPID HUMAN [Concomitant]
     Route: 058
     Dates: start: 19950101

REACTIONS (8)
  - ARRHYTHMIA [None]
  - BLOOD GLUCOSE INCREASED [None]
  - BLOOD PRESSURE DECREASED [None]
  - DIALYSIS [None]
  - HEADACHE [None]
  - HYPOCALCAEMIA [None]
  - MALAISE [None]
  - PARAESTHESIA [None]
